FAERS Safety Report 7273337-9 (Version None)
Quarter: 2011Q1

REPORT INFORMATION
  Report Type: 
  Country: None (occurrence: None)
  Receive Date: 20110203
  Receipt Date: 20110128
  Transmission Date: 20110831
  Serious: Yes (Death, Hospitalization)
  Sender: FDA-Public Use
  Company Number: PT-BAXTER-2010BH030904

PATIENT
  Age: 82 Year
  Sex: Male

DRUGS (6)
  1. PHYSIOSOL IN PLASTIC CONTAINER [Suspect]
     Route: 033
     Dates: start: 20100426, end: 20110117
  2. EXTRANEAL [Suspect]
     Indication: PERITONEAL DIALYSIS
     Route: 033
     Dates: start: 20100426, end: 20101223
  3. EXTRANEAL [Suspect]
     Route: 033
     Dates: start: 20100426, end: 20101223
  4. PHYSIOSOL IN PLASTIC CONTAINER [Suspect]
     Route: 033
     Dates: start: 20101111, end: 20110117
  5. HEPARIN [Concomitant]
     Indication: PRODUCT USED FOR UNKNOWN INDICATION
     Route: 065
  6. PHYSIOSOL IN PLASTIC CONTAINER [Suspect]
     Indication: PERITONEAL DIALYSIS
     Route: 033
     Dates: start: 20101111, end: 20110117

REACTIONS (4)
  - PERITONITIS [None]
  - DIARRHOEA [None]
  - HYPOKALAEMIA [None]
  - SEPSIS [None]
